FAERS Safety Report 17953601 (Version 2)
Quarter: 2021Q2

REPORT INFORMATION
  Report Type: Spontaneous
  Country: CA (occurrence: CA)
  Receive Date: 20200628
  Receipt Date: 20210426
  Transmission Date: 20210717
  Serious: Yes (Other)
  Sender: FDA-Public Use
  Company Number: CA-PFIZER INC-2018214514

PATIENT
  Age: 65 Year
  Sex: Female

DRUGS (4)
  1. PREDNISONE. [Concomitant]
     Active Substance: PREDNISONE
     Dosage: 5 MG, ONCE DAILY (OD)
  2. OZONE [Concomitant]
     Active Substance: OZONE
     Dosage: UNK
  3. XELJANZ [Suspect]
     Active Substance: TOFACITINIB CITRATE
     Indication: RHEUMATOID ARTHRITIS
     Dosage: 5 MG, 2X/DAY
     Route: 048
     Dates: start: 20180501
  4. NALTREXONE /00723402/ [Concomitant]
     Active Substance: NALTREXONE
     Dosage: UNK

REACTIONS (26)
  - Malaise [Unknown]
  - Product dose omission in error [Unknown]
  - Condition aggravated [Not Recovered/Not Resolved]
  - Pyrexia [Recovered/Resolved]
  - Gait disturbance [Unknown]
  - Fatigue [Not Recovered/Not Resolved]
  - Irritable bowel syndrome [Unknown]
  - Weight decreased [Unknown]
  - Tearfulness [Unknown]
  - Pain [Unknown]
  - Oesophageal stenosis [Unknown]
  - Therapeutic response unexpected [Unknown]
  - Osteoarthritis [Not Recovered/Not Resolved]
  - Chills [Recovered/Resolved]
  - Influenza [Recovered/Resolved]
  - C-reactive protein increased [Recovered/Resolved]
  - Bone deformity [Unknown]
  - Red blood cell count decreased [Unknown]
  - Tooth disorder [Unknown]
  - Gastrooesophageal reflux disease [Unknown]
  - Burnout syndrome [Not Recovered/Not Resolved]
  - Sjogren^s syndrome [Unknown]
  - Diverticulitis [Not Recovered/Not Resolved]
  - Therapeutic product effect incomplete [Unknown]
  - Depressed mood [Not Recovered/Not Resolved]
  - Stress [Not Recovered/Not Resolved]

NARRATIVE: CASE EVENT DATE: 20180501
